FAERS Safety Report 4616176-7 (Version None)
Quarter: 2005Q1

REPORT INFORMATION
  Report Type: 
  Country: None (occurrence: None)
  Receive Date: 20050321
  Receipt Date: 20030718
  Transmission Date: 20050727
  Serious: No
  Sender: FDA-Public Use
  Company Number: 5962

PATIENT
  Sex: Male

DRUGS (1)
  1. AMIODARONE [Suspect]
     Dosage: 300 MG IV
     Route: 042
     Dates: start: 20030612, end: 20030613

REACTIONS (1)
  - EXTRAVASATION [None]
